FAERS Safety Report 9831111 (Version 2)
Quarter: 2014Q2

REPORT INFORMATION
  Report Type: Report from Study
  Country: FR (occurrence: FR)
  Receive Date: 20140121
  Receipt Date: 20140402
  Transmission Date: 20141212
  Serious: Yes (Hospitalization)
  Sender: FDA-Public Use
  Company Number: FR-ROCHE-1335750

PATIENT
  Age: 44 Year
  Sex: Female

DRUGS (5)
  1. PEG-INTERFERON ALFA 2A [Suspect]
     Indication: HEPATITIS C
     Route: 058
     Dates: start: 20130107, end: 20131209
  2. RIBAVIRIN [Suspect]
     Indication: HEPATITIS C
     Route: 048
     Dates: start: 20130107, end: 20131219
  3. TANGANIL [Concomitant]
     Indication: VERTIGO
     Route: 048
     Dates: start: 20130712, end: 20131014
  4. DAFALGAN CODEINE [Concomitant]
     Indication: PAIN
     Route: 048
     Dates: start: 20130712, end: 201312
  5. NEORECORMON [Concomitant]
     Indication: ANAEMIA
     Route: 042
     Dates: start: 20130121

REACTIONS (2)
  - Menometrorrhagia [Recovered/Resolved]
  - Anaemia [Recovering/Resolving]
